FAERS Safety Report 23123331 (Version 1)
Quarter: 2023Q4

REPORT INFORMATION
  Report Type: Spontaneous
  Country: IR (occurrence: IR)
  Receive Date: 20231030
  Receipt Date: 20231030
  Transmission Date: 20240110
  Serious: Yes (Hospitalization, Other)
  Sender: FDA-Public Use
  Company Number: IR-MLMSERVICE-2023101346030421

PATIENT
  Age: 34 Year
  Sex: Female

DRUGS (6)
  1. ETOPOSIDE [Suspect]
     Active Substance: ETOPOSIDE
     Indication: Teratoma
  2. CISPLATIN [Suspect]
     Active Substance: CISPLATIN
     Indication: Teratoma
  3. BLEOMYCIN [Suspect]
     Active Substance: BLEOMYCIN SULFATE
     Indication: Endometriosis
  4. BLEOMYCIN [Suspect]
     Active Substance: BLEOMYCIN SULFATE
     Indication: Teratoma
  5. CISPLATIN [Suspect]
     Active Substance: CISPLATIN
     Indication: Endometriosis
  6. ETOPOSIDE [Suspect]
     Active Substance: ETOPOSIDE
     Indication: Endometriosis

REACTIONS (2)
  - Infection [Unknown]
  - Neuropathy peripheral [Unknown]
